FAERS Safety Report 7707757-2 (Version None)
Quarter: 2011Q3

REPORT INFORMATION
  Report Type: 
  Country: None (occurrence: None)
  Receive Date: 20110824
  Receipt Date: 20110819
  Transmission Date: 20111222
  Serious: Yes (Hospitalization, Other)
  Sender: FDA-Public Use
  Company Number: US-PFIZER INC-2011048341

PATIENT
  Sex: Female
  Weight: 66 kg

DRUGS (7)
  1. PANTOPRAZOLE [Suspect]
     Indication: GASTRITIS
     Dosage: 40 MG, 1X/DAY
     Dates: start: 20110201
  2. ZOLOFT [Suspect]
     Dosage: 150MG,UNK
     Dates: end: 20110201
  3. ZOLOFT [Suspect]
     Indication: DEPRESSION
     Dosage: 50 MG, UNK
     Route: 048
     Dates: start: 20100801
  4. PROTONIX [Suspect]
     Indication: GASTRITIS
     Dosage: 40 MG, 1X/DAY
     Route: 048
     Dates: start: 20090601, end: 20110201
  5. SERTRALINE HYDROCHLORIDE [Suspect]
     Indication: DEPRESSION
     Dosage: 100 MG, 2X/DAY
     Route: 048
     Dates: start: 20110201, end: 20110201
  6. ZOLOFT [Suspect]
     Dosage: 100MG,UNK
     Route: 048
  7. LIPITOR [Suspect]
     Dosage: UNK

REACTIONS (15)
  - HEPATITIS [None]
  - DRUG INEFFECTIVE [None]
  - PARAESTHESIA [None]
  - ANXIETY [None]
  - ARTHRALGIA [None]
  - ABDOMINAL PAIN UPPER [None]
  - LIVER INJURY [None]
  - BLOOD CHOLESTEROL INCREASED [None]
  - RASH [None]
  - FEAR [None]
  - HAEMATEMESIS [None]
  - SWELLING [None]
  - NERVOUSNESS [None]
  - PRURITUS [None]
  - HEART RATE INCREASED [None]
